FAERS Safety Report 9225838 (Version 1)
Quarter: 2013Q2

REPORT INFORMATION
  Report Type: Report from Study
  Country: CA (occurrence: CA)
  Receive Date: 20130411
  Receipt Date: 20130411
  Transmission Date: 20140414
  Serious: Yes (Other)
  Sender: FDA-Public Use
  Company Number: CA-JNJFOC-20130105393

PATIENT
  Age: 44 Year
  Sex: Female
  Weight: 85.6 kg

DRUGS (7)
  1. REMICADE [Suspect]
     Indication: HIDRADENITIS
     Route: 042
     Dates: start: 20090616
  2. ENABLEX [Concomitant]
     Route: 065
  3. CELEXA [Concomitant]
     Route: 065
  4. B12 [Concomitant]
     Route: 065
  5. MULTIVITAMINS [Concomitant]
     Route: 065
  6. PANTOLOC [Concomitant]
     Route: 065
  7. NAPROXEN [Concomitant]
     Route: 065

REACTIONS (2)
  - Plastic surgery [Recovered/Resolved]
  - Off label use [Unknown]
